FAERS Safety Report 13264290 (Version 1)
Quarter: 2017Q1

REPORT INFORMATION
  Report Type: Spontaneous
  Country: None (occurrence: US)
  Receive Date: 20170222
  Receipt Date: 20170222
  Transmission Date: 20170428
  Serious: Yes (Other)
  Sender: FDA-Public Use
  Company Number: None

PATIENT
  Age: 36 Year
  Sex: Female
  Weight: 58.9 kg

DRUGS (2)
  1. MAXIPIME [Suspect]
     Active Substance: CEFEPIME HYDROCHLORIDE
     Indication: POST PROCEDURAL INFECTION
     Route: 042
     Dates: start: 20170217, end: 20170218
  2. MAXIPIME [Suspect]
     Active Substance: CEFEPIME HYDROCHLORIDE
     Indication: SKIN INFECTION
     Route: 042
     Dates: start: 20170217, end: 20170218

REACTIONS (4)
  - Paraesthesia oral [None]
  - Urticaria [None]
  - Rash [None]
  - Dyspnoea [None]

NARRATIVE: CASE EVENT DATE: 20170219
